FAERS Safety Report 18962689 (Version 1)
Quarter: 2021Q1

REPORT INFORMATION
  Report Type: Spontaneous
  Country: US (occurrence: US)
  Receive Date: 20210302
  Receipt Date: 20210302
  Transmission Date: 20210420
  Serious: Yes (Life-Threatening)
  Sender: FDA-Public Use
  Company Number: None

PATIENT
  Age: 77 Year
  Sex: Male
  Weight: 88 kg

DRUGS (2)
  1. PROTAMINE SULFATE (PROTAMINE SO4 10MG/ML INJ) [Suspect]
     Active Substance: PROTAMINE SULFATE
     Indication: SURGERY
  2. PROTAMINE SULFATE (PROTAMINE SO4 10MG/ML INJ) [Suspect]
     Active Substance: PROTAMINE SULFATE
     Indication: SURGERY
     Route: 042
     Dates: start: 20210111, end: 20210111

REACTIONS (4)
  - Respiratory arrest [None]
  - Anaphylactic reaction [None]
  - Hypersensitivity [None]
  - Cardiac arrest [None]

NARRATIVE: CASE EVENT DATE: 20210111
